FAERS Safety Report 11099644 (Version 1)
Quarter: 2015Q2

REPORT INFORMATION
  Report Type: Other
  Country: GB (occurrence: GB)
  Receive Date: 20150508
  Receipt Date: 20150508
  Transmission Date: 20150821
  Serious: Yes (Other)
  Sender: FDA-Public Use
  Company Number: GB-MYLANLABS-2015M1014009

PATIENT

DRUGS (7)
  1. PERMETHRIN. [Concomitant]
     Active Substance: PERMETHRIN
     Dosage: UNK (USE AS DIRECTED)
     Dates: start: 20150206, end: 20150208
  2. VENTOLIN [Concomitant]
     Active Substance: ALBUTEROL SULFATE
     Dosage: 2 DF, UNK (INHALE TWO DOSES AS NEEDED)
     Route: 055
     Dates: start: 20131104
  3. ZOPICLONE [Concomitant]
     Active Substance: ZOPICLONE
     Dosage: UNK (TAKE ONE OR TWO AT NIGHT FOR UP TO 5 DAYS)
     Dates: start: 20150402, end: 20150403
  4. NAPROXEN. [Concomitant]
     Active Substance: NAPROXEN
     Dosage: UNK (TAKE ONE TWICE DAILY AS REQUIRED)
     Dates: start: 20150325
  5. ZAPAIN [Concomitant]
     Active Substance: ACETAMINOPHEN\CODEINE PHOSPHATE
     Dosage: UNK (TAKE 1 OR 2 4 TIMES/DAY AS REQUIRED)
     Dates: start: 20150325, end: 20150414
  6. GABAPENTIN. [Suspect]
     Active Substance: GABAPENTIN
     Dosage: UNK
     Dates: start: 20150415
  7. QVAR [Concomitant]
     Active Substance: BECLOMETHASONE DIPROPIONATE
     Dosage: 2 DF, BID
     Route: 055
     Dates: start: 20131104

REACTIONS (3)
  - Suicidal ideation [Unknown]
  - Depressed mood [Recovered/Resolved]
  - Feeling abnormal [Unknown]

NARRATIVE: CASE EVENT DATE: 20150415
